FAERS Safety Report 26171030 (Version 2)
Quarter: 2025Q4

REPORT INFORMATION
  Report Type: Report from Study
  Country: US (occurrence: US)
  Receive Date: 20251217
  Receipt Date: 20251223
  Transmission Date: 20260118
  Serious: Yes (Hospitalization, Other)
  Sender: DECIPHERA PHARMACEUTICALS
  Company Number: US-DECIPHERA PHARMACEUTICALS LLC-2025US001552

PATIENT
  Age: 68 Year
  Sex: Male

DRUGS (2)
  1. QINLOCK [Suspect]
     Active Substance: RIPRETINIB
     Indication: Gastrointestinal stromal tumour
     Dosage: 150 MILLIGRAM, QD (50 MG, 3 TABLETS ONCE DAILY)
     Route: 061
     Dates: start: 20251107, end: 2025
  2. QINLOCK [Suspect]
     Active Substance: RIPRETINIB
     Dosage: 150 MILLIGRAM, QD (50 MG, 3 TABLETS ONCE DAILY)
     Route: 061
     Dates: start: 2025

REACTIONS (2)
  - Malignant neoplasm progression [Unknown]
  - Post procedural infection [Unknown]

NARRATIVE: CASE EVENT DATE: 20250101
